FAERS Safety Report 6194347-9 (Version None)
Quarter: 2009Q2

REPORT INFORMATION
  Report Type: 
  Country: None (occurrence: None)
  Receive Date: 20090519
  Receipt Date: 20090508
  Transmission Date: 20091009
  Serious: Yes (Death)
  Sender: FDA-Public Use
  Company Number: GB-JNJFOC-20090501997

PATIENT
  Sex: Male
  Weight: 100 kg

DRUGS (13)
  1. REMICADE [Suspect]
     Indication: RHEUMATOID ARTHRITIS
     Route: 042
  2. METHOTREXATE [Concomitant]
  3. PREDNISOLONE [Concomitant]
  4. AMLODIPINE [Concomitant]
  5. ATENOLOL [Concomitant]
  6. BENDROFLUAZIDE [Concomitant]
  7. ACETAMINOPHEN WITH PROPOXYPHENE HCL TAB [Concomitant]
  8. ETORICOXIB [Concomitant]
  9. FOLIC ACID [Concomitant]
  10. PANTOPRAZOLE SODIUM [Concomitant]
  11. PROCHLORPERAZINE [Concomitant]
  12. CALCI-CHEW [Concomitant]
  13. CYCLOSPORINE [Concomitant]

REACTIONS (1)
  - LUNG CANCER METASTATIC [None]
